FAERS Safety Report 7642445-2 (Version None)
Quarter: 2011Q3

REPORT INFORMATION
  Report Type: 
  Country: None (occurrence: None)
  Receive Date: 20110728
  Receipt Date: 20110406
  Transmission Date: 20111222
  Serious: No
  Sender: FDA-Public Use
  Company Number: US-MYLANLABS-2011S1007314

PATIENT
  Age: 75 Year
  Sex: Male

DRUGS (8)
  1. TERAZOSIN HCL [Concomitant]
     Indication: BLOOD PRESSURE INCREASED
     Route: 048
  2. AMLODIPINE [Concomitant]
     Indication: BLOOD PRESSURE INCREASED
     Route: 048
  3. DIOVAN HCT [Concomitant]
     Indication: BLOOD PRESSURE INCREASED
     Route: 048
  4. LEVOTHYROXINE SODIUM [Suspect]
     Route: 048
     Dates: start: 20101101, end: 20110316
  5. LOVASTATIN [Concomitant]
     Indication: BLOOD PRESSURE INCREASED
     Route: 048
  6. LEVOTHYROXINE SODIUM [Suspect]
     Indication: THYROIDECTOMY
     Route: 048
     Dates: end: 20101101
  7. THYROID THERAPY [Suspect]
     Indication: THYROIDECTOMY
     Route: 048
     Dates: start: 20110301
  8. LABETALOL HCL [Concomitant]
     Indication: BLOOD PRESSURE INCREASED
     Route: 048

REACTIONS (5)
  - ABASIA [None]
  - CARDIAC DISORDER [None]
  - FATIGUE [None]
  - MALAISE [None]
  - BLOOD THYROID STIMULATING HORMONE INCREASED [None]
